FAERS Safety Report 11415371 (Version 1)
Quarter: 2015Q3

REPORT INFORMATION
  Report Type: Spontaneous
  Country: JP (occurrence: JP)
  Receive Date: 20150825
  Receipt Date: 20150825
  Transmission Date: 20151125
  Serious: Yes (Hospitalization)
  Sender: FDA-Public Use
  Company Number: JP-JNJFOC-20150723720

PATIENT
  Age: 86 Year
  Sex: Female

DRUGS (1)
  1. TRAMCET [Suspect]
     Active Substance: ACETAMINOPHEN\TRAMADOL
     Indication: PAIN
     Route: 048
     Dates: start: 20150725, end: 201508

REACTIONS (2)
  - Inadequate analgesia [Unknown]
  - Hospitalisation [Unknown]

NARRATIVE: CASE EVENT DATE: 20150725
